FAERS Safety Report 21515853 (Version 2)
Quarter: 2023Q2

REPORT INFORMATION
  Report Type: Report from Study
  Country: US (occurrence: US)
  Receive Date: 20221027
  Receipt Date: 20230630
  Transmission Date: 20230722
  Serious: Yes (Hospitalization)
  Sender: FDA-Public Use
  Company Number: US-GW PHARMA-2022-US-033597

PATIENT
  Sex: Female

DRUGS (1)
  1. EPIDIOLEX [Suspect]
     Active Substance: CANNABIDIOL
     Indication: Lennox-Gastaut syndrome
     Dosage: 1.5 ML TWICE DAILY FOR 7 DAYS THEN 3ML TWICE DAILY THEREAFTER
     Route: 048
     Dates: start: 202210

REACTIONS (1)
  - Hospitalisation [Unknown]
